FAERS Safety Report 9202512 (Version 1)
Quarter: 2013Q2

REPORT INFORMATION
  Report Type: Spontaneous
  Country: US (occurrence: US)
  Receive Date: 20130401
  Receipt Date: 20130401
  Transmission Date: 20140414
  Serious: No
  Sender: FDA-Public Use
  Company Number: US-PFIZER INC-2013103155

PATIENT
  Age: 76 Year
  Sex: Female
  Weight: 68.03 kg

DRUGS (8)
  1. LIPITOR [Suspect]
     Indication: BLOOD CHOLESTEROL INCREASED
     Dosage: 20 MG, 1X/DAY
     Dates: start: 2007, end: 2012
  2. ATORVASTATIN CALCIUM [Suspect]
     Indication: BLOOD CHOLESTEROL INCREASED
     Dosage: 20 MG, 1X/DAY
     Dates: start: 201209
  3. ATORVASTATIN CALCIUM [Suspect]
     Dosage: 40 MG, 1X/DAY
     Dates: start: 2012
  4. LISINOPRIL [Concomitant]
     Indication: ATRIAL FIBRILLATION
     Dosage: 5 MG, 1X/DAY
  5. DIGOXIN [Concomitant]
     Indication: ATRIAL FIBRILLATION
     Dosage: 0.25 MG, 1X/DAY
  6. DILTIAZEM [Concomitant]
     Indication: ATRIAL FIBRILLATION
     Dosage: 120 MG, 1X/DAY
  7. HYDROCHLOROTHIAZIDE [Concomitant]
     Indication: ATRIAL FIBRILLATION
     Dosage: 12.5 MG, 1X/DAY
  8. WARFARIN [Concomitant]
     Indication: ANTICOAGULANT THERAPY
     Dosage: UNK, 1X/DAY, 5 MG  SIX DAYS OF WEEK AND 7.5 MG THURSDAY

REACTIONS (1)
  - Drug ineffective [Unknown]
